FAERS Safety Report 5677764-2 (Version None)
Quarter: 2008Q1

REPORT INFORMATION
  Report Type: 
  Country: None (occurrence: None)
  Receive Date: 20080324
  Receipt Date: 20080310
  Transmission Date: 20080703
  Serious: Yes (Hospitalization)
  Sender: FDA-Public Use
  Company Number: US-TYCO HEALTHCARE/MALLINCKRODT-T200800524

PATIENT

DRUGS (11)
  1. LORTAB [Suspect]
     Route: 048
     Dates: start: 20071010
  2. SU 11248 [Suspect]
     Indication: BREAST CANCER
     Dosage: 37.5 MG, QD
     Route: 048
     Dates: start: 20071031
  3. PACLITAXEL [Suspect]
     Indication: BREAST CANCER
     Dosage: 130 MG/M2, QWK X3
     Route: 042
     Dates: start: 20071031
  4. MORPHINE SULFATE [Concomitant]
     Route: 048
     Dates: start: 20071017
  5. COMPAZINE                          /00013302/ [Concomitant]
     Route: 048
     Dates: start: 20071031
  6. PROTONIX                           /01263201/ [Concomitant]
     Indication: GASTRIC ULCER
     Route: 048
     Dates: start: 20080130
  7. POTASSIUM CHLORIDE [Concomitant]
     Route: 048
     Dates: start: 20080130
  8. BACTRIM [Concomitant]
     Route: 048
     Dates: start: 20080207
  9. PREDNISOLON                        /00016201/ [Concomitant]
     Dates: start: 20071220, end: 20071221
  10. DIPHENHYDRAMINE HCL [Concomitant]
     Dates: start: 20071220, end: 20071221
  11. LOVENOX [Concomitant]
     Dates: start: 20080215

REACTIONS (4)
  - CHEST PAIN [None]
  - DIARRHOEA [None]
  - DYSPNOEA [None]
  - NAUSEA [None]
